FAERS Safety Report 23658442 (Version 1)
Quarter: 2024Q1

REPORT INFORMATION
  Report Type: Spontaneous
  Country: HR (occurrence: HR)
  Receive Date: 20240321
  Receipt Date: 20240321
  Transmission Date: 20240410
  Serious: Yes (Hospitalization, Other)
  Sender: FDA-Public Use
  Company Number: HR-Merck Healthcare KGaA-2024013146

PATIENT
  Sex: Male

DRUGS (12)
  1. IRINOTECAN [Suspect]
     Active Substance: IRINOTECAN
     Indication: Colorectal cancer metastatic
  2. IRINOTECAN [Suspect]
     Active Substance: IRINOTECAN
     Dates: start: 20220509, end: 20220811
  3. IRINOTECAN [Suspect]
     Active Substance: IRINOTECAN
     Dates: start: 20230112, end: 20230708
  4. FLUOROURACIL [Suspect]
     Active Substance: FLUOROURACIL
     Indication: Colorectal cancer metastatic
     Dates: start: 20230112, end: 20230708
  5. FLUOROURACIL [Suspect]
     Active Substance: FLUOROURACIL
     Dates: start: 20220509, end: 20220811
  6. FLUOROURACIL [Suspect]
     Active Substance: FLUOROURACIL
  7. ERBITUX [Suspect]
     Active Substance: CETUXIMAB
     Indication: Colorectal cancer metastatic
  8. ERBITUX [Suspect]
     Active Substance: CETUXIMAB
     Dates: start: 20230112, end: 20230708
  9. ERBITUX [Suspect]
     Active Substance: CETUXIMAB
     Dates: start: 20220509, end: 20220811
  10. LEUCOVORIN [Suspect]
     Active Substance: LEUCOVORIN\LEUCOVORIN CALCIUM
     Indication: Colorectal cancer metastatic
     Dates: start: 20220509, end: 20220811
  11. LEUCOVORIN [Suspect]
     Active Substance: LEUCOVORIN\LEUCOVORIN CALCIUM
     Dates: start: 20230112, end: 20230708
  12. LEUCOVORIN [Suspect]
     Active Substance: LEUCOVORIN\LEUCOVORIN CALCIUM

REACTIONS (5)
  - Diarrhoea [Recovered/Resolved]
  - Malignant neoplasm progression [Unknown]
  - Granulocytopenia [Recovered/Resolved]
  - Acute kidney injury [Recovered/Resolved]
  - Rash [Recovered/Resolved]
